FAERS Safety Report 6269865-5 (Version None)
Quarter: 2009Q3

REPORT INFORMATION
  Report Type: 
  Country: None (occurrence: None)
  Receive Date: 20090714
  Receipt Date: 20090707
  Transmission Date: 20100115
  Serious: Yes (Hospitalization)
  Sender: FDA-Public Use
  Company Number: 2007JP005651

PATIENT
  Age: 12 Year
  Sex: Female

DRUGS (5)
  1. PROGRAF [Suspect]
     Indication: UNRELATED DONOR BONE MARROW TRANSPLANTATION THERAPY
     Dosage: ORAL
     Route: 048
  2. METHOTREXATE [Concomitant]
  3. ANTIBIOTICS [Concomitant]
  4. ACYCLOVIR [Concomitant]
  5. ANTIFUNGALS [Concomitant]

REACTIONS (2)
  - ENGRAFTMENT SYNDROME [None]
  - EOSINOPHILIC PUSTULAR FOLLICULITIS [None]
